FAERS Safety Report 22614976 (Version 1)
Quarter: 2023Q2

REPORT INFORMATION
  Report Type: Spontaneous
  Country: MY (occurrence: MY)
  Receive Date: 20230619
  Receipt Date: 20230619
  Transmission Date: 20230721
  Serious: Yes (Other)
  Sender: FDA-Public Use
  Company Number: MY-002147023-NVSC2023MY136275

PATIENT
  Age: 32 Year
  Sex: Female

DRUGS (1)
  1. CATAFLAM [Suspect]
     Active Substance: DICLOFENAC POTASSIUM
     Indication: Gout
     Dosage: 50 MG
     Route: 048

REACTIONS (4)
  - Rash erythematous [Recovered/Resolved]
  - Seizure [Recovered/Resolved]
  - Gaze palsy [Recovered/Resolved]
  - Drooling [Recovered/Resolved]
